FAERS Safety Report 6434833-7 (Version None)
Quarter: 2009Q4

REPORT INFORMATION
  Report Type: 
  Country: None (occurrence: None)
  Receive Date: 20091109
  Receipt Date: 20091109
  Transmission Date: 20100525
  Serious: Yes (Hospitalization)
  Sender: FDA-Public Use
  Company Number: None

PATIENT
  Age: 19 Year
  Sex: Female

DRUGS (1)
  1. YAZ [Suspect]
     Indication: CONTRACEPTION
     Dosage: ONCE A DAY PO
     Route: 048
     Dates: start: 20090701, end: 20091021

REACTIONS (6)
  - CHEST PAIN [None]
  - DIZZINESS [None]
  - HYPERTENSION [None]
  - NAUSEA [None]
  - RESTLESSNESS [None]
  - VOMITING [None]
